FAERS Safety Report 19030317 (Version 6)
Quarter: 2022Q2

REPORT INFORMATION
  Report Type: Report from Study
  Country: US (occurrence: US)
  Receive Date: 20210319
  Receipt Date: 20220502
  Transmission Date: 20220721
  Serious: No
  Sender: FDA-Public Use
  Company Number: NVSC2021US056157

PATIENT
  Age: 29 Year
  Sex: Female

DRUGS (3)
  1. KESIMPTA [Suspect]
     Active Substance: OFATUMUMAB
     Indication: Multiple sclerosis
     Dosage: 20 MG (INJECTED WEEK 0, WEEK 1 AND WEEK 2)
     Route: 065
     Dates: start: 20210303, end: 20210310
  2. CALCIUM MAGNESIUM +VITAMIN D3 [Concomitant]
     Indication: Product used for unknown indication
     Dosage: UNK
     Route: 065
  3. DEXAMETHASONE\NEOMYCIN SULFATE\POLYMYXIN B SULFATE [Concomitant]
     Active Substance: DEXAMETHASONE\NEOMYCIN SULFATE\POLYMYXIN B SULFATE
     Indication: Product used for unknown indication
     Dosage: UNK
     Route: 065

REACTIONS (7)
  - Influenza like illness [Unknown]
  - Pain [Recovering/Resolving]
  - Nasal congestion [Unknown]
  - Insomnia [Recovering/Resolving]
  - COVID-19 [Not Recovered/Not Resolved]
  - Anosmia [Unknown]
  - Product dose omission issue [Unknown]

NARRATIVE: CASE EVENT DATE: 20210314
